FAERS Safety Report 12497188 (Version 1)
Quarter: 2016Q2

REPORT INFORMATION
  Report Type: Spontaneous
  Country: GB (occurrence: GB)
  Receive Date: 20160624
  Receipt Date: 20160624
  Transmission Date: 20160815
  Serious: Yes (Other)
  Sender: FDA-Public Use
  Company Number: GB-APOTEX-2016AP009335

PATIENT

DRUGS (6)
  1. PAXIL [Suspect]
     Active Substance: PAROXETINE HYDROCHLORIDE
     Indication: PRODUCT USED FOR UNKNOWN INDICATION
     Dosage: UNK
     Route: 065
     Dates: start: 19961120, end: 199802
  2. MIRTAZAPINE. [Concomitant]
     Active Substance: MIRTAZAPINE
     Indication: PRODUCT USED FOR UNKNOWN INDICATION
     Route: 065
     Dates: start: 20050920
  3. PAROXETINE. [Suspect]
     Active Substance: PAROXETINE
     Indication: PRODUCT USED FOR UNKNOWN INDICATION
     Dosage: 20 MG, UNK
     Route: 065
     Dates: start: 20000518
  4. PROPANOLOL                         /00030001/ [Concomitant]
     Active Substance: PROPRANOLOL HYDROCHLORIDE
     Indication: PRODUCT USED FOR UNKNOWN INDICATION
  5. DIAZEPAM. [Concomitant]
     Active Substance: DIAZEPAM
     Indication: PRODUCT USED FOR UNKNOWN INDICATION
     Route: 065
     Dates: start: 19961120
  6. PROTHIADEN [Concomitant]
     Active Substance: DOTHIEPIN HYDROCHLORIDE
     Indication: PRODUCT USED FOR UNKNOWN INDICATION
     Route: 065
     Dates: start: 20020201

REACTIONS (53)
  - Confusional state [Unknown]
  - Paranoia [Unknown]
  - Decreased appetite [Unknown]
  - Sleep disorder [Unknown]
  - Suicidal ideation [Unknown]
  - Diarrhoea [Unknown]
  - Dyspnoea [Unknown]
  - Dry mouth [Unknown]
  - Anxiety [Unknown]
  - Extrasystoles [Unknown]
  - Mental status changes [Unknown]
  - Mental disorder [Unknown]
  - Gait disturbance [Unknown]
  - Muscle contractions involuntary [Unknown]
  - Musculoskeletal chest pain [Unknown]
  - Depression [Unknown]
  - Depersonalisation/derealisation disorder [Unknown]
  - Feeling abnormal [Unknown]
  - Dissociation [Unknown]
  - Myalgia [Unknown]
  - Morbid thoughts [Unknown]
  - Chest pain [Unknown]
  - Drug withdrawal syndrome [Unknown]
  - Self-injurious ideation [Unknown]
  - Tremor [Unknown]
  - Dizziness [Unknown]
  - Vision blurred [Unknown]
  - Feeling of despair [Unknown]
  - Dyslexia [Unknown]
  - Nausea [Unknown]
  - Paraesthesia [Unknown]
  - Disturbance in attention [Unknown]
  - Heart rate irregular [Unknown]
  - Agoraphobia [Unknown]
  - Palpitations [Unknown]
  - Depressed mood [Unknown]
  - Ocular icterus [Unknown]
  - Mental impairment [Unknown]
  - Hallucination [Unknown]
  - Intentional self-injury [Unknown]
  - Weight increased [Unknown]
  - Lethargy [Unknown]
  - Middle insomnia [Unknown]
  - Panic attack [Unknown]
  - Hyperacusis [Unknown]
  - Hunger [Unknown]
  - Liver tenderness [Unknown]
  - Obsessive-compulsive disorder [Unknown]
  - Muscular weakness [Unknown]
  - Yellow skin [Unknown]
  - Dyskinesia [Unknown]
  - Hyperhidrosis [Unknown]
  - Poor quality sleep [Unknown]

NARRATIVE: CASE EVENT DATE: 200312
